FAERS Safety Report 4964135-7 (Version None)
Quarter: 2006Q1

REPORT INFORMATION
  Report Type: 
  Country: None (occurrence: None)
  Receive Date: 20060330
  Receipt Date: 20060310
  Transmission Date: 20060701
  Serious: Yes (Death, Hospitalization)
  Sender: FDA-Public Use
  Company Number: USA0510110667

PATIENT
  Age: 69 Year
  Sex: Female
  Weight: 54.1 kg

DRUGS (7)
  1. FORTEO [Suspect]
     Indication: SPINAL FRACTURE
     Dosage: 20 UG, DAILY (1/D)
     Dates: start: 20050901, end: 20050915
  2. AVINZA [Concomitant]
  3. LORTAB [Concomitant]
  4. GLEEVEC [Concomitant]
  5. SYNTHROID [Concomitant]
  6. FENTANYL [Concomitant]
  7. FORTEO [Concomitant]

REACTIONS (11)
  - BACK PAIN [None]
  - DEHYDRATION [None]
  - DRUG INTOLERANCE [None]
  - FLUID INTAKE REDUCED [None]
  - METASTASES TO BONE [None]
  - METASTASES TO LIVER [None]
  - METASTASES TO LUNG [None]
  - NAUSEA [None]
  - NECK PAIN [None]
  - URETERIC CANCER METASTATIC [None]
  - VOMITING [None]
